FAERS Safety Report 8267914-6 (Version None)
Quarter: 2012Q2

REPORT INFORMATION
  Report Type: 
  Country: None (occurrence: None)
  Receive Date: 20120409
  Receipt Date: 20120330
  Transmission Date: 20120825
  Serious: Yes (Hospitalization)
  Sender: FDA-Public Use
  Company Number: NL-MEDIMMUNE-MEDI-0014413

PATIENT
  Sex: Male
  Weight: 6.12 kg

DRUGS (2)
  1. SYNAGIS [Suspect]
     Route: 030
     Dates: start: 20111208, end: 20120105
  2. SYNAGIS [Suspect]
     Route: 030
     Dates: start: 20110101, end: 20111013

REACTIONS (5)
  - FLUID INTAKE REDUCED [None]
  - ABNORMAL BEHAVIOUR [None]
  - PRODUCTIVE COUGH [None]
  - MALABSORPTION [None]
  - COUGH [None]
